FAERS Safety Report 8064719-6 (Version None)
Quarter: 2012Q1

REPORT INFORMATION
  Report Type: 
  Country: None (occurrence: None)
  Receive Date: 20120123
  Receipt Date: 20120111
  Transmission Date: 20120608
  Serious: Yes (Other)
  Sender: FDA-Public Use
  Company Number: DE-ELI_LILLY_AND_COMPANY-DE201105008498

PATIENT
  Age: 81 Year
  Sex: Female

DRUGS (3)
  1. FORTEO [Suspect]
     Indication: OSTEOPOROSIS
     Dosage: UNK, QD
     Route: 058
     Dates: start: 20100603
  2. VITAMIN D [Concomitant]
  3. ANALGESICS [Concomitant]
     Dosage: UNK, QOD

REACTIONS (6)
  - GASTRIC OPERATION [None]
  - ABDOMINAL DISCOMFORT [None]
  - ABDOMINAL PAIN UPPER [None]
  - DYSPNOEA [None]
  - FEEDING DISORDER [None]
  - WEIGHT DECREASED [None]
